FAERS Safety Report 20700447 (Version 1)
Quarter: 2022Q2

REPORT INFORMATION
  Report Type: Spontaneous
  Country: US (occurrence: None)
  Receive Date: 20220410
  Receipt Date: 20220410
  Transmission Date: 20220720
  Serious: Yes (Other)
  Sender: FDA-Public Use
  Company Number: None

PATIENT
  Age: 57 Year
  Sex: Female
  Weight: 81 kg

DRUGS (4)
  1. ATORVASTATIN [Suspect]
     Active Substance: ATORVASTATIN
     Indication: Blood cholesterol
     Route: 048
  2. AMLODIPINE [Concomitant]
     Active Substance: AMLODIPINE BESYLATE
  3. ATORVASTATIN [Concomitant]
     Active Substance: ATORVASTATIN
  4. B VITAMINS (NATURE MADE) [Concomitant]

REACTIONS (5)
  - Feeling abnormal [None]
  - Memory impairment [None]
  - Memory impairment [None]
  - Low density lipoprotein increased [None]
  - Memory impairment [None]

NARRATIVE: CASE EVENT DATE: 20210923
